FAERS Safety Report 22150831 (Version 1)
Quarter: 2023Q1

REPORT INFORMATION
  Report Type: Spontaneous
  Country: US (occurrence: US)
  Receive Date: 20230329
  Receipt Date: 20230329
  Transmission Date: 20230418
  Serious: No
  Sender: FDA-Public Use
  Company Number: US-SA-SAC20230327000833

PATIENT
  Age: 18 Year
  Sex: Male

DRUGS (3)
  1. DUPIXENT [Suspect]
     Active Substance: DUPILUMAB
     Indication: DiGeorge^s syndrome
     Dosage: 300 MG, QW
     Route: 058
     Dates: start: 20230227
  2. DUPIXENT [Suspect]
     Active Substance: DUPILUMAB
     Indication: Short stature
  3. DUPIXENT [Suspect]
     Active Substance: DUPILUMAB
     Indication: Immune system disorder

REACTIONS (4)
  - Pruritus [Unknown]
  - Skin swelling [Unknown]
  - Pain [Unknown]
  - Product use in unapproved indication [Unknown]
